FAERS Safety Report 7644694-6 (Version None)
Quarter: 2011Q3

REPORT INFORMATION
  Report Type: 
  Country: None (occurrence: None)
  Receive Date: 20110729
  Receipt Date: 20110718
  Transmission Date: 20111222
  Serious: Yes (Other)
  Sender: FDA-Public Use
  Company Number: US-MUTUAL PHARMACEUTICAL COMPANY, INC.-ATEN20110001

PATIENT
  Sex: Female
  Weight: 115.77 kg

DRUGS (11)
  1. ATENOLOL [Suspect]
     Indication: CORONARY ARTERY DISEASE
     Route: 048
     Dates: start: 20070418, end: 20100101
  2. ASPIRIN [Concomitant]
     Indication: PROPHYLAXIS
     Route: 048
  3. QVAR 40 [Concomitant]
     Indication: ASTHMA
  4. COZAAR [Concomitant]
     Indication: HYPERTENSION
     Route: 048
  5. LASIX [Concomitant]
     Indication: OEDEMA PERIPHERAL
     Route: 048
     Dates: end: 20100101
  6. CLONAZEPAM [Concomitant]
     Indication: RESTLESS LEGS SYNDROME
     Route: 048
  7. FEXOFENADINE [Concomitant]
     Indication: HYPERSENSITIVITY
     Route: 048
  8. ATENOLOL [Suspect]
     Indication: HYPERTENSION
  9. PROAIR HFA [Concomitant]
     Indication: ASTHMA
  10. SIMVASTATIN [Concomitant]
     Indication: PROPHYLAXIS
     Route: 048
  11. PRILOSEC [Concomitant]
     Indication: PROPHYLAXIS
     Route: 048

REACTIONS (8)
  - BRADYCARDIA [None]
  - HEART RATE IRREGULAR [None]
  - DIARRHOEA [None]
  - BUNDLE BRANCH BLOCK LEFT [None]
  - PNEUMONIA [None]
  - ATRIOVENTRICULAR BLOCK COMPLETE [None]
  - CHEST PAIN [None]
  - DYSPNOEA [None]
